FAERS Safety Report 5165716-0 (Version None)
Quarter: 2006Q4

REPORT INFORMATION
  Report Type: 
  Country: None (occurrence: None)
  Receive Date: 20061128
  Receipt Date: 20061114
  Transmission Date: 20070319
  Serious: Yes (Hospitalization)
  Sender: FDA-Public Use
  Company Number: 2006-02271

PATIENT
  Age: 66 Year
  Sex: Female

DRUGS (3)
  1. VELCADE [Suspect]
     Indication: MULTIPLE MYELOMA
     Dosage: 1.70 MG,
     Dates: start: 20060731, end: 20060807
  2. AREDIA [Concomitant]
  3. ACYCLOVIR [Concomitant]

REACTIONS (1)
  - HERPES ZOSTER [None]
